FAERS Safety Report 24097001 (Version 1)
Quarter: 2024Q3

REPORT INFORMATION
  Report Type: Spontaneous
  Country: US (occurrence: US)
  Receive Date: 20240716
  Receipt Date: 20240716
  Transmission Date: 20241017
  Serious: No
  Sender: GRIFOLS
  Company Number: US-IGSA-BIG0028711

PATIENT
  Sex: Male

DRUGS (1)
  1. GAMUNEX-C [Suspect]
     Active Substance: HUMAN IMMUNOGLOBULIN G
     Indication: Product used for unknown indication
     Dosage: 40 GRAM, Q.WK.
     Route: 065
     Dates: start: 202404

REACTIONS (3)
  - Infection [Unknown]
  - Pyrexia [Unknown]
  - Intentional dose omission [Unknown]
